FAERS Safety Report 8005804-4 (Version None)
Quarter: 2011Q4

REPORT INFORMATION
  Report Type: 
  Country: None (occurrence: None)
  Receive Date: 20111223
  Receipt Date: 20111220
  Transmission Date: 20120403
  Serious: Yes (Hospitalization)
  Sender: FDA-Public Use
  Company Number: SE-PFIZER INC-2011308315

PATIENT
  Age: 50 Year
  Sex: Female

DRUGS (3)
  1. HYDROXOCOBALAMIN [Suspect]
     Indication: HOMOCYSTINURIA
     Dosage: 1 MG, MONTHLY
     Dates: start: 20070101, end: 20110101
  2. FOLIC ACID [Suspect]
     Indication: HOMOCYSTINURIA
     Dosage: 5 MG, 2X/DAY
     Route: 048
     Dates: start: 20070101, end: 20110101
  3. B-KOMBIN FORTE N [Suspect]
     Indication: HOMOCYSTINURIA
     Dosage: UNK
     Route: 048
     Dates: start: 20070101, end: 20110101

REACTIONS (1)
  - BREAST CANCER FEMALE [None]
